FAERS Safety Report 4333984-0 (Version None)
Quarter: 2004Q2

REPORT INFORMATION
  Report Type: 
  Country: None (occurrence: None)
  Receive Date: 20040402
  Receipt Date: 20040318
  Transmission Date: 20050107
  Serious: Yes (Death, Life-Threatening, Hospitalization)
  Sender: FDA-Public Use
  Company Number: 2004JP000045

PATIENT
  Age: 54 Year
  Sex: Male

DRUGS (1)
  1. PROGRAF [Suspect]
     Indication: RENAL TRANSPLANT
     Dosage: ORAL
     Route: 048
     Dates: start: 20030101, end: 20030731

REACTIONS (7)
  - BRAIN ABSCESS [None]
  - COUGH [None]
  - GRAND MAL CONVULSION [None]
  - LUNG DISORDER [None]
  - LUNG NEOPLASM [None]
  - NOCARDIOSIS [None]
  - PANCREATITIS ACUTE [None]
